FAERS Safety Report 21485555 (Version 1)
Quarter: 2022Q4

REPORT INFORMATION
  Report Type: Spontaneous
  Country: US (occurrence: US)
  Receive Date: 20221020
  Receipt Date: 20221020
  Transmission Date: 20230112
  Serious: No
  Sender: FDA-Public Use
  Company Number: US-JUBILANT PHARMA LTD-2022US000347

PATIENT

DRUGS (2)
  1. RUBY-FILL [Suspect]
     Active Substance: RUBIDIUM CHLORIDE RB-82
     Indication: Product used for unknown indication
     Dosage: 21.6 MCI, SINGLE DOSE
     Dates: start: 20220812, end: 20220812
  2. RUBY-FILL [Suspect]
     Active Substance: RUBIDIUM CHLORIDE RB-82
     Dosage: 6 MCI, SINGLE DOSE
     Dates: start: 20220812, end: 20220812

REACTIONS (2)
  - Drug ineffective [Unknown]
  - Underdose [Unknown]
